FAERS Safety Report 16086171 (Version 3)
Quarter: 2019Q2

REPORT INFORMATION
  Report Type: Report from Study
  Country: US (occurrence: US)
  Receive Date: 20190318
  Receipt Date: 20190426
  Transmission Date: 20190711
  Serious: Yes (Other)
  Sender: FDA-Public Use
  Company Number: US-BRISTOL-MYERS SQUIBB COMPANY-BMS-2019-026944

PATIENT
  Sex: Female

DRUGS (1)
  1. NIVOLUMAB [Suspect]
     Active Substance: NIVOLUMAB
     Indication: MALIGNANT MELANOMA
     Dosage: 480 MILLIGRAM, Q4WK
     Route: 042

REACTIONS (10)
  - Mass [Unknown]
  - Mastication disorder [Not Recovered/Not Resolved]
  - Toothache [Unknown]
  - Pruritus [Unknown]
  - Tooth infection [Unknown]
  - Diarrhoea [Recovering/Resolving]
  - Precancerous skin lesion [Unknown]
  - Pain [Unknown]
  - Cough [Unknown]
  - Fatigue [Recovered/Resolved]
